FAERS Safety Report 10461682 (Version 2)
Quarter: 2014Q3

REPORT INFORMATION
  Report Type: Spontaneous
  Country: US (occurrence: None)
  Receive Date: 20140916
  Receipt Date: 20140930
  Transmission Date: 20150326
  Serious: Yes (Death)
  Sender: FDA-Public Use
  Company Number: HYP201409-000061

PATIENT
  Age: 4 Year
  Sex: Female
  Weight: 26.6 kg

DRUGS (2)
  1. CITRULLINE (CITRULLINE) [Concomitant]
  2. RAVICTI [Suspect]
     Active Substance: GLYCEROL PHENYLBUTYRATE
     Indication: AMINO ACID METABOLISM DISORDER
     Dates: start: 20131229, end: 2014

REACTIONS (5)
  - Foaming at mouth [None]
  - Gastrointestinal inflammation [None]
  - Accidental overdose [None]
  - Pulmonary oedema [None]
  - Liver disorder [None]

NARRATIVE: CASE EVENT DATE: 20140831
